FAERS Safety Report 9645809 (Version 1)
Quarter: 2013Q4

REPORT INFORMATION
  Report Type: Spontaneous
  Country: FR (occurrence: FR)
  Receive Date: 20131025
  Receipt Date: 20131025
  Transmission Date: 20140711
  Serious: Yes (Hospitalization, Other)
  Sender: FDA-Public Use
  Company Number: FR-EISAI INC-E3810-06731-SPO-FR

PATIENT
  Age: 71 Year
  Sex: Male

DRUGS (1)
  1. PARIET (RABEPRAZOLE) [Suspect]
     Indication: PRODUCT USED FOR UNKNOWN INDICATION
     Dosage: UNKNOWN
     Route: 048
     Dates: start: 2003, end: 201309

REACTIONS (4)
  - Bronchitis [Recovered/Resolved]
  - Interstitial lung disease [Unknown]
  - Febrile convulsion [Unknown]
  - Inflammation [Unknown]
